FAERS Safety Report 14122241 (Version 2)
Quarter: 2018Q1

REPORT INFORMATION
  Report Type: Spontaneous
  Country: US (occurrence: US)
  Receive Date: 20171024
  Receipt Date: 20180123
  Transmission Date: 20180508
  Serious: No
  Sender: FDA-Public Use
  Company Number: US-IMPAX LABORATORIES, INC-2017-IPXL-02330

PATIENT
  Age: 80 Year
  Sex: Female
  Weight: 86 kg

DRUGS (6)
  1. RYTARY [Suspect]
     Active Substance: CARBIDOPA\LEVODOPA
     Indication: PARKINSON^S DISEASE
     Dosage: UNK
     Route: 048
     Dates: start: 2015
  2. RYTARY [Suspect]
     Active Substance: CARBIDOPA\LEVODOPA
     Dosage: 2 CAPS (1 CAP OF 61.25/245 MG + 1 CAP OF 48.75/245 MG), 3/DAY
     Route: 048
     Dates: start: 2017, end: 2017
  3. RYTARY [Suspect]
     Active Substance: CARBIDOPA\LEVODOPA
     Dosage: 61.25/245 MG, ONE CAPSULE, THREE TIMES A DAY
     Route: 048
  4. NAPROXEN. [Concomitant]
     Active Substance: NAPROXEN
     Indication: PAIN
     Dosage: 500 MG, AS NEEDED
     Route: 065
  5. MELOXICAM. [Concomitant]
     Active Substance: MELOXICAM
     Indication: PAIN
     Dosage: 15 MG, UNK
     Route: 065
     Dates: start: 2016
  6. RYTARY [Suspect]
     Active Substance: CARBIDOPA\LEVODOPA
     Dosage: 61.25/245 MG 1 CAPS, 3/DAY + 48.75/195 MG ONE CAPS 1/DAY ALONG WITH NOON DOSE
     Route: 048
     Dates: start: 201706

REACTIONS (5)
  - Disorientation [Recovered/Resolved]
  - Hypersomnia [Unknown]
  - Drug effect incomplete [Unknown]
  - Mental impairment [Unknown]
  - Dizziness [Recovered/Resolved]

NARRATIVE: CASE EVENT DATE: 201706
